FAERS Safety Report 16318850 (Version 1)
Quarter: 2019Q2

REPORT INFORMATION
  Report Type: Spontaneous
  Country: AU (occurrence: AU)
  Receive Date: 20190516
  Receipt Date: 20190516
  Transmission Date: 20190711
  Serious: Yes (Other)
  Sender: FDA-Public Use
  Company Number: AU-009507513-1905AUS006330

PATIENT
  Age: 55 Year
  Sex: Female

DRUGS (4)
  1. STROMECTOL [Suspect]
     Active Substance: IVERMECTIN
     Indication: ROSACEA
     Dosage: 6 MILLIGRAM, QD
     Route: 048
     Dates: start: 20180201, end: 20180202
  2. SOOLANTRA [Concomitant]
     Active Substance: IVERMECTIN
     Indication: ROSACEA
     Dosage: UNK, QD
     Dates: start: 201803
  3. STROMECTOL [Suspect]
     Active Substance: IVERMECTIN
     Dosage: 6 MILLIGRAM, QD
     Route: 048
     Dates: start: 20180301, end: 20180302
  4. SULFUR. [Concomitant]
     Active Substance: SULFUR
     Indication: ROSACEA
     Dosage: UNK, QD
     Dates: start: 201803

REACTIONS (1)
  - Insomnia [Recovered/Resolved with Sequelae]

NARRATIVE: CASE EVENT DATE: 20180304
